FAERS Safety Report 9541711 (Version 2)
Quarter: 2013Q4

REPORT INFORMATION
  Report Type: Report from Study
  Country: SE (occurrence: SE)
  Receive Date: 20130923
  Receipt Date: 20131110
  Transmission Date: 20140711
  Serious: Yes (Other)
  Sender: FDA-Public Use
  Company Number: SE-ROCHE-1277377

PATIENT
  Sex: Female

DRUGS (18)
  1. ROACTEMRA [Suspect]
     Indication: RHEUMATOID ARTHRITIS
     Route: 042
     Dates: start: 201307, end: 201310
  2. ROACTEMRA [Suspect]
     Indication: PSORIATIC ARTHROPATHY
  3. IMOVANE [Suspect]
     Indication: PRODUCT USED FOR UNKNOWN INDICATION
     Route: 065
  4. ARCOXIA [Concomitant]
     Route: 048
  5. BEHEPAN [Concomitant]
     Route: 048
  6. CETIRIZIN [Concomitant]
     Route: 048
  7. DOSTINEX [Concomitant]
     Route: 048
  8. FOLACIN [Concomitant]
     Route: 048
  9. LEVAXIN [Concomitant]
     Route: 065
  10. SELOKEN ZOC [Concomitant]
  11. SULFASALAZIN [Concomitant]
     Dosage: 6 TABLET PER DAY
     Route: 065
  12. ALVEDON [Concomitant]
  13. CITODON [Concomitant]
  14. BETAPRED [Concomitant]
  15. BRICANYL [Concomitant]
  16. PULMICORT [Concomitant]
  17. ZOMIG [Concomitant]
  18. XENICAL [Concomitant]
     Dosage: 2 TO 3 TABLETS PER DAY.
     Route: 065

REACTIONS (4)
  - Nausea [Recovered/Resolved]
  - Dizziness [Recovered/Resolved]
  - Fatigue [Not Recovered/Not Resolved]
  - Drug ineffective [Unknown]
